FAERS Safety Report 11640365 (Version 1)
Quarter: 2015Q4

REPORT INFORMATION
  Report Type: Spontaneous
  Country: GB (occurrence: GB)
  Receive Date: 20151019
  Receipt Date: 20151019
  Transmission Date: 20160304
  Serious: Yes (Hospitalization)
  Sender: FDA-Public Use
  Company Number: GB-TEVA-600426ACC

PATIENT
  Age: 72 Year
  Sex: Female

DRUGS (12)
  1. FOLIC ACID. [Suspect]
     Active Substance: FOLIC ACID
     Dosage: 5 MILLIGRAM DAILY;
     Route: 048
  2. THIAMINE. [Concomitant]
     Active Substance: THIAMINE
     Dosage: 200 MILLIGRAM DAILY;
     Route: 048
  3. BISOPROLOL [Concomitant]
     Active Substance: BISOPROLOL
     Dosage: 7.5 MILLIGRAM DAILY;
     Route: 048
  4. CLOPIDOGREL [Concomitant]
     Active Substance: CLOPIDOGREL BISULFATE
     Dosage: 75 MILLIGRAM DAILY;
     Route: 048
  5. CETIRIZINE [Concomitant]
     Active Substance: CETIRIZINE HYDROCHLORIDE
     Route: 048
  6. FUROSEMIDE. [Concomitant]
     Active Substance: FUROSEMIDE
     Dosage: 80 MILLIGRAM DAILY;
     Route: 048
  7. RAMIPRIL. [Suspect]
     Active Substance: RAMIPRIL
     Dosage: 2.5 MILLIGRAM DAILY;
     Route: 048
     Dates: start: 20150730
  8. FLAMAZINE [Concomitant]
     Active Substance: SILVER SULFADIAZINE
     Dosage: 2 DOSAGE FORMS DAILY;
     Route: 061
  9. SALBUTAMOL [Concomitant]
     Active Substance: ALBUTEROL
     Dosage: 2 PUFFS
     Route: 050
  10. FOSTAIR [Concomitant]
     Active Substance: BECLOMETHASONE\FORMOTEROL
     Dosage: 4 DOSAGE FORMS DAILY; 100MICROGRAMS/6MICROGRAMS; DAILY DOSE: 4 DOSAGE FORMS
     Route: 055
  11. TIOTROPIUM BROMIDE [Concomitant]
     Active Substance: TIOTROPIUM BROMIDE
     Dosage: 18 MICROGRAM DAILY;
     Route: 055
  12. ALLOPURINOL. [Concomitant]
     Active Substance: ALLOPURINOL
     Dosage: 300 MILLIGRAM DAILY;
     Route: 048

REACTIONS (5)
  - Hypersensitivity [Recovered/Resolved]
  - Dysphagia [Recovered/Resolved]
  - Swelling face [Recovered/Resolved]
  - Angioedema [Recovered/Resolved]
  - Dry mouth [Recovered/Resolved]

NARRATIVE: CASE EVENT DATE: 20150920
